FAERS Safety Report 24272332 (Version 1)
Quarter: 2024Q3

REPORT INFORMATION
  Report Type: Report from Study
  Country: US (occurrence: None)
  Receive Date: 20240902
  Receipt Date: 20240902
  Transmission Date: 20241016
  Serious: Yes (Other)
  Sender: ASTRAZENECA
  Company Number: 2024A197940

PATIENT
  Sex: Female

DRUGS (1)
  1. FARXIGA [Suspect]
     Active Substance: DAPAGLIFLOZIN PROPANEDIOL
     Route: 048

REACTIONS (5)
  - Decreased activity [Unknown]
  - Cardiac failure [Unknown]
  - Diabetes mellitus [Unknown]
  - Hypocholesterolaemia [Unknown]
  - Oxygen saturation decreased [Unknown]
